FAERS Safety Report 4590114-8 (Version None)
Quarter: 2005Q1

REPORT INFORMATION
  Report Type: 
  Country: None (occurrence: None)
  Receive Date: 20050217
  Receipt Date: 20050217
  Transmission Date: 20050727
  Serious: Yes (Death)
  Sender: FDA-Public Use
  Company Number: None

PATIENT
  Age: 83 Year
  Sex: Female
  Weight: 29.9374 kg

DRUGS (1)
  1. ENOXAPARIN 70 MG SQ BID [Suspect]
     Indication: HIP SURGERY
     Dosage: 70 MG SQ BID
     Route: 058
     Dates: start: 20050125

REACTIONS (2)
  - MEDICATION ERROR [None]
  - POST PROCEDURAL HAEMORRHAGE [None]
